FAERS Safety Report 24918154 (Version 1)
Quarter: 2025Q1

REPORT INFORMATION
  Report Type: Spontaneous
  Country: JP (occurrence: JP)
  Receive Date: 20250203
  Receipt Date: 20250203
  Transmission Date: 20250409
  Serious: Yes (Other)
  Sender: PFIZER
  Company Number: JP-PFIZER INC-202500023085

PATIENT

DRUGS (5)
  1. BOSULIF [Suspect]
     Active Substance: BOSUTINIB MONOHYDRATE
     Dates: start: 20161213
  2. BOSULIF [Suspect]
     Active Substance: BOSUTINIB MONOHYDRATE
     Dates: start: 20161227
  3. BOSULIF [Suspect]
     Active Substance: BOSUTINIB MONOHYDRATE
     Dates: start: 20170117
  4. BOSULIF [Suspect]
     Active Substance: BOSUTINIB MONOHYDRATE
  5. HYDREA [Concomitant]
     Active Substance: HYDROXYUREA

REACTIONS (3)
  - Second primary malignancy [Not Recovered/Not Resolved]
  - Primary myelofibrosis [Not Recovered/Not Resolved]
  - Platelet count increased [Not Recovered/Not Resolved]

NARRATIVE: CASE EVENT DATE: 20161213
